FAERS Safety Report 10775877 (Version 1)
Quarter: 2015Q1

REPORT INFORMATION
  Report Type: Spontaneous
  Country: NO (occurrence: NO)
  Receive Date: 20150209
  Receipt Date: 20150209
  Transmission Date: 20150721
  Serious: Yes (Other)
  Sender: FDA-Public Use
  Company Number: NO-JNJFOC-20150120405

PATIENT
  Sex: Female

DRUGS (1)
  1. RISPERDAL [Suspect]
     Active Substance: RISPERIDONE
     Indication: PRODUCT USED FOR UNKNOWN INDICATION
     Route: 065

REACTIONS (10)
  - Parkinsonism [Not Recovered/Not Resolved]
  - Hot flush [Not Recovered/Not Resolved]
  - Hyperhidrosis [Not Recovered/Not Resolved]
  - Mental impairment [Not Recovered/Not Resolved]
  - Asthenia [Unknown]
  - Restlessness [Not Recovered/Not Resolved]
  - VIIth nerve paralysis [Unknown]
  - Memory impairment [Not Recovered/Not Resolved]
  - Drooling [Not Recovered/Not Resolved]
  - Disturbance in attention [Not Recovered/Not Resolved]
